FAERS Safety Report 8844767 (Version 1)
Quarter: 2012Q4

REPORT INFORMATION
  Report Type: Spontaneous
  Country: US (occurrence: None)
  Receive Date: 20121015
  Receipt Date: 20121015
  Transmission Date: 20130627
  Serious: No
  Sender: FDA-Public Use
  Company Number: DKLU1077683

PATIENT
  Sex: Female

DRUGS (1)
  1. PANHEMATIN [Suspect]
     Indication: PORPHYRIA ACUTE

REACTIONS (5)
  - Nasopharyngitis [None]
  - Sinusitis [None]
  - Headache [None]
  - Fatigue [None]
  - Parosmia [None]
